FAERS Safety Report 4696208-0 (Version None)
Quarter: 2005Q2

REPORT INFORMATION
  Report Type: 
  Country: None (occurrence: None)
  Receive Date: 20050621
  Receipt Date: 20050420
  Transmission Date: 20051028
  Serious: Yes (Hospitalization)
  Sender: FDA-Public Use
  Company Number: 2005CG00795

PATIENT
  Age: 76 Year
  Sex: Female

DRUGS (6)
  1. ARIMIDEX [Suspect]
     Indication: BREAST CANCER
     Route: 048
     Dates: start: 20041201, end: 20050201
  2. CYCLOPHOSPHAMIDE [Concomitant]
     Indication: BREAST CANCER
     Dates: start: 20040428, end: 20040930
  3. METHOTREXATE [Concomitant]
     Indication: BREAST CANCER
     Dates: start: 20040428, end: 20040930
  4. FLUOROURACIL [Concomitant]
     Indication: BREAST CANCER
     Dates: start: 20040428, end: 20040930
  5. EPREX [Concomitant]
  6. NEULASTA [Concomitant]

REACTIONS (2)
  - ACUTE MYELOID LEUKAEMIA [None]
  - FATIGUE [None]
